FAERS Safety Report 9745843 (Version 1)
Quarter: 2013Q4

REPORT INFORMATION
  Report Type: Spontaneous
  Country: US (occurrence: None)
  Receive Date: 20131206
  Receipt Date: 20131206
  Transmission Date: 20140711
  Serious: Yes (Hospitalization)
  Sender: FDA-Public Use
  Company Number: None

PATIENT
  Age: 2 Year
  Sex: Female
  Weight: 13.3 kg

DRUGS (5)
  1. DEXAMETHASONE [Suspect]
  2. DOXURUBICIN [Suspect]
  3. METHOTREXATE [Suspect]
  4. ONCASPAR [Suspect]
  5. VINCRISTINE SULFATE [Suspect]

REACTIONS (5)
  - Neutropenia [None]
  - Cough [None]
  - Diarrhoea [None]
  - Colitis [None]
  - Intestinal perforation [None]
